FAERS Safety Report 9551404 (Version 1)
Quarter: 2013Q3

REPORT INFORMATION
  Report Type: Spontaneous
  Country: US (occurrence: None)
  Receive Date: 20130923
  Receipt Date: 20130923
  Transmission Date: 20140515
  Serious: Yes (Hospitalization)
  Sender: FDA-Public Use
  Company Number: None

PATIENT
  Age: 63 Year
  Sex: Male
  Weight: 75 kg

DRUGS (1)
  1. CETUXIMAB [Suspect]
     Indication: TONSIL CANCER
     Route: 042
     Dates: start: 20110207, end: 20110207

REACTIONS (8)
  - Chills [None]
  - Stridor [None]
  - Dizziness [None]
  - Pyrexia [None]
  - Respiratory depression [None]
  - Hypertension [None]
  - Cough [None]
  - Wheezing [None]
